FAERS Safety Report 14328800 (Version 1)
Quarter: 2017Q4

REPORT INFORMATION
  Report Type: Spontaneous
  Country: US (occurrence: US)
  Receive Date: 20171227
  Receipt Date: 20171227
  Transmission Date: 20180321
  Serious: No
  Sender: FDA-Public Use
  Company Number: US-ACTELION-A-US2017-163527

PATIENT
  Age: 64 Year
  Sex: Female

DRUGS (2)
  1. TRACLEER [Suspect]
     Active Substance: BOSENTAN
     Indication: PULMONARY ARTERIAL HYPERTENSION
     Dosage: 125 MG, BID
     Route: 048
     Dates: start: 20170905
  2. TRACLEER [Suspect]
     Active Substance: BOSENTAN
     Dosage: 62.5 MG, QD
     Route: 048
     Dates: start: 20170905

REACTIONS (3)
  - Drug dose omission [Unknown]
  - Dyspnoea [Unknown]
  - Abdominal discomfort [Recovering/Resolving]

NARRATIVE: CASE EVENT DATE: 20171001
